FAERS Safety Report 12943116 (Version 2)
Quarter: 2016Q4

REPORT INFORMATION
  Report Type: Report from Study
  Country: US (occurrence: US)
  Receive Date: 20161115
  Receipt Date: 20161123
  Transmission Date: 20170207
  Serious: Yes (Other)
  Sender: FDA-Public Use
  Company Number: PHEH2016US029795

PATIENT
  Age: 65 Year
  Sex: Male

DRUGS (1)
  1. TAFINLAR [Suspect]
     Active Substance: DABRAFENIB MESYLATE
     Indication: PRODUCT USED FOR UNKNOWN INDICATION
     Dosage: UNK
     Route: 065

REACTIONS (1)
  - Body temperature increased [Unknown]

NARRATIVE: CASE EVENT DATE: 20161109
